FAERS Safety Report 7994299-2 (Version None)
Quarter: 2011Q4

REPORT INFORMATION
  Report Type: 
  Country: None (occurrence: None)
  Receive Date: 20111220
  Receipt Date: 20111215
  Transmission Date: 20120403
  Serious: Yes (Hospitalization)
  Sender: FDA-Public Use
  Company Number: US-BRISTOL-MYERS SQUIBB COMPANY-16296162

PATIENT
  Age: 70 Year
  Sex: Female

DRUGS (1)
  1. YERVOY [Suspect]

REACTIONS (1)
  - NEUTROPENIA [None]
